FAERS Safety Report 12399837 (Version 1)
Quarter: 2016Q2

REPORT INFORMATION
  Report Type: Spontaneous
  Country: US (occurrence: US)
  Receive Date: 20160524
  Receipt Date: 20160524
  Transmission Date: 20160815
  Serious: Yes (Other)
  Sender: FDA-Public Use
  Company Number: US-SA-2016SA095727

PATIENT
  Age: 64 Year
  Sex: Female

DRUGS (2)
  1. SOLOSTAR [Concomitant]
     Active Substance: DEVICE
  2. LANTUS SOLOSTAR [Suspect]
     Active Substance: INSULIN GLARGINE
     Indication: TYPE 2 DIABETES MELLITUS
     Dosage: START DATE: 7-8 YEARS DOSE:42 UNIT(S)
     Route: 065

REACTIONS (4)
  - Fall [Unknown]
  - Product use issue [Unknown]
  - Wrong technique in product usage process [Unknown]
  - Hip fracture [Unknown]

NARRATIVE: CASE EVENT DATE: 20151217
